FAERS Safety Report 23122345 (Version 2)
Quarter: 2023Q4

REPORT INFORMATION
  Report Type: Spontaneous
  Country: GB (occurrence: GB)
  Receive Date: 20231030
  Receipt Date: 20231129
  Transmission Date: 20240109
  Serious: Yes (Other)
  Sender: FDA-Public Use
  Company Number: None

PATIENT
  Age: 26 Year
  Sex: Female
  Weight: 55 kg

DRUGS (5)
  1. UPADACITINIB [Suspect]
     Active Substance: UPADACITINIB
     Indication: Colitis ulcerative
     Dosage: LAST ADMIN DATE: 2023, 45 MG ONCE A DAY IN MORNING, REDUCED TO 30 MG AND THEN TO 15 MG
     Route: 048
     Dates: start: 20230714
  2. UPADACITINIB [Suspect]
     Active Substance: UPADACITINIB
     Indication: Colitis ulcerative
     Route: 048
     Dates: start: 2023, end: 2023
  3. UPADACITINIB [Suspect]
     Active Substance: UPADACITINIB
     Indication: Colitis ulcerative
     Route: 048
     Dates: start: 2023
  4. PREDNISOLONE [Concomitant]
     Active Substance: PREDNISOLONE
     Indication: Colitis ulcerative
     Dates: start: 20230715, end: 20230903
  5. FENTANYL [Concomitant]
     Active Substance: FENTANYL\FENTANYL CITRATE
     Indication: Colitis ulcerative
     Dates: start: 20230619, end: 20230930

REACTIONS (12)
  - Premenstrual syndrome [Unknown]
  - Acne cystic [Not Recovered/Not Resolved]
  - Folliculitis [Not Recovered/Not Resolved]
  - Oligomenorrhoea [Unknown]
  - Abdominal pain [Unknown]
  - Pain in extremity [Unknown]
  - Discomfort [Unknown]
  - Suicidal ideation [Unknown]
  - Myalgia [Unknown]
  - Skin texture abnormal [Unknown]
  - Mental disorder [Unknown]
  - Scar [Unknown]

NARRATIVE: CASE EVENT DATE: 20230101
